FAERS Safety Report 14052932 (Version 2)
Quarter: 2018Q1

REPORT INFORMATION
  Report Type: Spontaneous
  Country: US (occurrence: US)
  Receive Date: 20171006
  Receipt Date: 20180219
  Transmission Date: 20180508
  Serious: No
  Sender: FDA-Public Use
  Company Number: US-JNJFOC-20170826613

PATIENT
  Sex: Male
  Weight: 104.33 kg

DRUGS (1)
  1. INVEGA TRINZA [Suspect]
     Active Substance: PALIPERIDONE PALMITATE
     Indication: FEAR
     Route: 030
     Dates: start: 2015, end: 2016

REACTIONS (5)
  - Product use in unapproved indication [Unknown]
  - Therapy cessation [Unknown]
  - Feeling abnormal [Not Recovered/Not Resolved]
  - Off label use [Unknown]
  - Headache [Not Recovered/Not Resolved]

NARRATIVE: CASE EVENT DATE: 2015
